FAERS Safety Report 4557699-9 (Version None)
Quarter: 2005Q1

REPORT INFORMATION
  Report Type: 
  Country: None (occurrence: None)
  Receive Date: 20050118
  Receipt Date: 20050107
  Transmission Date: 20050727
  Serious: Yes (Disabling)
  Sender: FDA-Public Use
  Company Number: FRWYE321507JAN05

PATIENT

DRUGS (1)
  1. MINOCIN [Suspect]
     Indication: ACNE
     Dosage: 100 MG 1X PER 1 DAY
     Route: 048
     Dates: start: 20031003, end: 20031013

REACTIONS (3)
  - ABORTION INDUCED [None]
  - DRUG EXPOSURE DURING PREGNANCY [None]
  - HYPOPLASTIC LEFT HEART SYNDROME [None]
